FAERS Safety Report 7591450-3 (Version None)
Quarter: 2011Q3

REPORT INFORMATION
  Report Type: 
  Country: None (occurrence: None)
  Receive Date: 20110701
  Receipt Date: 20110701
  Transmission Date: 20111222
  Serious: No
  Sender: FDA-Public Use
  Company Number: None

PATIENT
  Age: 59 Year
  Sex: Female
  Weight: 70.7611 kg

DRUGS (1)
  1. NYSTATIN [Suspect]
     Indication: RASH
     Dosage: APPLY TWICE A DAY OTHER
     Route: 050
     Dates: start: 20110626, end: 20110630

REACTIONS (3)
  - SKIN DISORDER [None]
  - APPLICATION SITE REACTION [None]
  - VULVOVAGINAL DISORDER [None]
